FAERS Safety Report 13906725 (Version 1)
Quarter: 2017Q3

REPORT INFORMATION
  Report Type: Spontaneous
  Country: US (occurrence: US)
  Receive Date: 20170825
  Receipt Date: 20170825
  Transmission Date: 20171127
  Serious: Yes (Other)
  Sender: FDA-Public Use
  Company Number: US-AMGEN-USASP2017126183

PATIENT
  Age: 79 Year
  Sex: Female

DRUGS (2)
  1. PENTASA [Concomitant]
     Active Substance: MESALAMINE
  2. PROLIA [Suspect]
     Active Substance: DENOSUMAB
     Indication: OSTEOPOROSIS POSTMENOPAUSAL
     Dosage: UNK UNK, Q6MO
     Route: 065

REACTIONS (7)
  - Nephrolithiasis [Unknown]
  - Haemorrhage [Unknown]
  - Abdominal distension [Unknown]
  - Fall [Unknown]
  - Osteoarthritis [Unknown]
  - Joint dislocation [Unknown]
  - Diarrhoea [Unknown]

NARRATIVE: CASE EVENT DATE: 2016
